FAERS Safety Report 8585515-7 (Version None)
Quarter: 2012Q3

REPORT INFORMATION
  Report Type: 
  Country: None (occurrence: None)
  Receive Date: 20120810
  Receipt Date: 20120802
  Transmission Date: 20120928
  Serious: Yes (Other)
  Sender: FDA-Public Use
  Company Number: JP-VERTEX PHARMACEUTICALS INC.-AE-2012-011716

PATIENT
  Age: 63 Year
  Sex: Male

DRUGS (8)
  1. RIBAVIRIN [Concomitant]
     Route: 048
     Dates: start: 20120515, end: 20120611
  2. RIBAVIRIN [Concomitant]
     Route: 048
     Dates: start: 20120612
  3. RIBAVIRIN [Concomitant]
     Indication: HEPATITIS C
     Route: 048
     Dates: start: 20120410, end: 20120514
  4. PEGINTERFERON ALFA-2B [Concomitant]
     Indication: HEPATITIS C
     Route: 058
     Dates: start: 20120410, end: 20120423
  5. INCIVEK [Suspect]
     Indication: HEPATITIS C
     Route: 048
     Dates: start: 20120410, end: 20120422
  6. INCIVEK [Suspect]
     Route: 048
     Dates: start: 20120423, end: 20120625
  7. PEGINTERFERON ALFA-2B [Concomitant]
     Route: 058
     Dates: start: 20120501
  8. ALLOPURINOL [Concomitant]
     Route: 048
     Dates: start: 20120423, end: 20120625

REACTIONS (1)
  - AGRANULOCYTOSIS [None]
